FAERS Safety Report 8822293 (Version 1)
Quarter: 2012Q4

REPORT INFORMATION
  Report Type: 
  Country: SI (occurrence: SI)
  Receive Date: 20121003
  Receipt Date: 20121003
  Transmission Date: 20130627
  Serious: Yes (Other)
  Sender: FDA-Public Use
  Company Number: SI-AMGEN-SVNSP2012061351

PATIENT
  Sex: Male

DRUGS (2)
  1. PROLIA [Suspect]
     Indication: PRODUCT USED FOR UNKNOWN INDICATION
     Dosage: 60 mg/ml, q6mo
     Route: 058
  2. MEDROL                             /00049601/ [Concomitant]
     Indication: MUSCULOSKELETAL PAIN

REACTIONS (2)
  - Uveitis [Unknown]
  - Panophthalmitis [Unknown]
